FAERS Safety Report 5091353-2 (Version None)
Quarter: 2006Q3

REPORT INFORMATION
  Report Type: 
  Country: None (occurrence: None)
  Receive Date: 20060824
  Receipt Date: 20060808
  Transmission Date: 20061208
  Serious: Yes (Disabling)
  Sender: FDA-Public Use
  Company Number: PAR_0743_2006

PATIENT
  Age: 82 Year
  Sex: Female

DRUGS (5)
  1. MANIDON [Suspect]
     Indication: HYPERTENSION
     Dosage: 120 MG PO
     Route: 048
     Dates: start: 20030101
  2. FLATORIL [Suspect]
     Indication: DYSPEPSIA
     Dosage: 2 TAB QDAY PO
     Route: 048
     Dates: start: 20040101, end: 20060504
  3. SEROXAT [Suspect]
     Indication: DEPRESSION
     Dosage: 20 MG QDAY PO
     Route: 048
     Dates: start: 20010101
  4. ACECLOFENAC [Concomitant]
  5. LEKOVIT CA [Concomitant]

REACTIONS (2)
  - HYPERTONIA [None]
  - HYPOKINESIA [None]
